FAERS Safety Report 6895843-9 (Version None)
Quarter: 2010Q3

REPORT INFORMATION
  Report Type: 
  Country: None (occurrence: None)
  Receive Date: 20100728
  Receipt Date: 20100720
  Transmission Date: 20110219
  Serious: Yes (Hospitalization)
  Sender: FDA-Public Use
  Company Number: UTC-001267

PATIENT
  Age: 42 Year
  Sex: Female
  Weight: 77 kg

DRUGS (16)
  1. REMODULIN [Suspect]
     Dosage: 37.44 UG/KG (0.026 UG/KG, 1 IN 1 MIN), SUBCUTANEOUS
     Route: 058
     Dates: start: 20080626
  2. REVATIO [Concomitant]
  3. ALDACTONE [Concomitant]
  4. LASIX [Concomitant]
  5. DIGOXIN [Concomitant]
  6. COUMADIN [Concomitant]
  7. TASIGNA (NILOTINIB HYDROCHLORIDE) [Concomitant]
  8. NEURONTIN [Concomitant]
  9. XANAX [Concomitant]
  10. WELLBUTRIN XL [Concomitant]
  11. SYNTHROID [Concomitant]
  12. SENOKOT XTRA (SENNA ALEXANDRINA) [Concomitant]
  13. BISCODYL (BISACODYL) [Concomitant]
  14. ALLOPURINOL [Concomitant]
  15. HYDROXYUREA [Concomitant]
  16. TESSALON [Concomitant]

REACTIONS (1)
  - LYMPHADENOPATHY [None]
